FAERS Safety Report 24312891 (Version 1)
Quarter: 2024Q3

REPORT INFORMATION
  Report Type: Spontaneous
  Country: CN (occurrence: CN)
  Receive Date: 20240912
  Receipt Date: 20240912
  Transmission Date: 20241016
  Serious: Yes (Death, Life-Threatening, Hospitalization)
  Sender: PAREXEL
  Company Number: CN-SHANGHAI JUNSHI BIOSCIENCES CO., LTD.-CN2024011327

PATIENT

DRUGS (1)
  1. TORIPALIMAB [Suspect]
     Active Substance: TORIPALIMAB
     Indication: Oropharyngeal cancer
     Dosage: 240 MG, EVERY 21 DAYS
     Route: 042
     Dates: start: 20240604, end: 20240625

REACTIONS (9)
  - Myasthenia gravis [Fatal]
  - Myocarditis [Fatal]
  - Immune-mediated lung disease [Fatal]
  - Acute respiratory failure [Fatal]
  - Renal failure [Fatal]
  - Transaminases increased [Unknown]
  - Off label use [Unknown]
  - Product administration error [Unknown]
  - Medication error [Unknown]

NARRATIVE: CASE EVENT DATE: 20240711
